FAERS Safety Report 4370356-7 (Version None)
Quarter: 2004Q2

REPORT INFORMATION
  Report Type: 
  Country: None (occurrence: None)
  Receive Date: 20040603
  Receipt Date: 20040217
  Transmission Date: 20050107
  Serious: No
  Sender: FDA-Public Use
  Company Number: US-BRISTOL-MYERS SQUIBB COMPANY-12509121

PATIENT
  Age: 24 Year
  Sex: Male
  Weight: 95 kg

DRUGS (2)
  1. ABILIFY [Suspect]
     Indication: INCREASED APPETITE
     Route: 048
     Dates: start: 20040112
  2. ABILIFY [Suspect]
     Indication: DRUG WITHDRAWAL SYNDROME
     Route: 048
     Dates: start: 20040112

REACTIONS (2)
  - INSOMNIA [None]
  - IRRITABLE BOWEL SYNDROME [None]
